FAERS Safety Report 7960222-X (Version None)
Quarter: 2011Q4

REPORT INFORMATION
  Report Type: 
  Country: None (occurrence: None)
  Receive Date: 20111206
  Receipt Date: 20111205
  Transmission Date: 20120403
  Serious: No
  Sender: FDA-Public Use
  Company Number: US-PFIZER INC-2011202083

PATIENT
  Age: 21 Year
  Sex: Male

DRUGS (1)
  1. EFFEXOR XR [Suspect]
     Dosage: 37.5 MG, SINGLE

REACTIONS (3)
  - DIZZINESS [None]
  - DISTURBANCE IN ATTENTION [None]
  - FEELING JITTERY [None]
